FAERS Safety Report 17172450 (Version 1)
Quarter: 2019Q4

REPORT INFORMATION
  Report Type: Spontaneous
  Country: SE (occurrence: SE)
  Receive Date: 20191219
  Receipt Date: 20191219
  Transmission Date: 20200122
  Serious: Yes (Other)
  Sender: FDA-Public Use
  Company Number: SE-MYLANLABS-2019M1124356

PATIENT
  Sex: Male

DRUGS (1)
  1. LERGIGAN (PROMETHAZINE) [Suspect]
     Active Substance: PROMETHAZINE HYDROCHLORIDE
     Indication: PRODUCT USED FOR UNKNOWN INDICATION
     Dosage: 150 MILLIGRAM
     Route: 048
     Dates: start: 20181103, end: 20181103

REACTIONS (6)
  - Pyrexia [Recovered/Resolved]
  - Sleep talking [Recovered/Resolved]
  - Accidental overdose [Unknown]
  - Dizziness [Recovered/Resolved]
  - Dysarthria [Recovered/Resolved]
  - Hallucination [Recovered/Resolved]

NARRATIVE: CASE EVENT DATE: 20181103
